FAERS Safety Report 21719498 (Version 2)
Quarter: 2022Q4

REPORT INFORMATION
  Report Type: Spontaneous
  Country: US (occurrence: US)
  Receive Date: 20221213
  Receipt Date: 20221215
  Transmission Date: 20230113
  Serious: No
  Sender: FDA-Public Use
  Company Number: US-SA-SAC20221209000964

PATIENT
  Age: 9 Year
  Sex: Male
  Weight: 23.6 kg

DRUGS (7)
  1. DUPIXENT [Suspect]
     Active Substance: DUPILUMAB
     Indication: Dermatitis atopic
     Dosage: 600 MG, 1X
     Route: 058
     Dates: start: 20221205, end: 20221205
  2. MOTRIN IB [Concomitant]
     Active Substance: IBUPROFEN
  3. TACROLIMUS [Concomitant]
     Active Substance: TACROLIMUS
     Dosage: 200MG
  4. PIMECROLIMUS [Concomitant]
     Active Substance: PIMECROLIMUS
  5. TRIAMCINOLONE ACETONIDE [Concomitant]
     Active Substance: TRIAMCINOLONE ACETONIDE
  6. AMOXICILLIN [Concomitant]
     Active Substance: AMOXICILLIN
     Dosage: 250MG
  7. ELIDEL [Concomitant]
     Active Substance: PIMECROLIMUS
     Dosage: 250MG

REACTIONS (6)
  - Pyrexia [Not Recovered/Not Resolved]
  - Headache [Not Recovered/Not Resolved]
  - Tenderness [Not Recovered/Not Resolved]
  - Viral infection [Unknown]
  - Eye irritation [Not Recovered/Not Resolved]
  - Injection site pain [Unknown]

NARRATIVE: CASE EVENT DATE: 20221205
